FAERS Safety Report 9316266 (Version 1)
Quarter: 2013Q2

REPORT INFORMATION
  Report Type: Spontaneous
  Country: US (occurrence: None)
  Receive Date: 20130522
  Receipt Date: 20130522
  Transmission Date: 20140414
  Serious: Yes (Hospitalization)
  Sender: FDA-Public Use
  Company Number: FK201301612

PATIENT
  Age: 37 Year
  Sex: Female

DRUGS (1)
  1. TOPOTECAN [Suspect]
     Indication: OVARIAN CANCER

REACTIONS (4)
  - Acute febrile neutrophilic dermatosis [None]
  - Conjunctivitis [None]
  - Dermatitis [None]
  - Staphylococcal infection [None]
